FAERS Safety Report 13334451 (Version 1)
Quarter: 2017Q1

REPORT INFORMATION
  Report Type: Spontaneous
  Country: US (occurrence: US)
  Receive Date: 20170314
  Receipt Date: 20170314
  Transmission Date: 20170428
  Serious: No
  Sender: FDA-Public Use
  Company Number: US-JNJFOC-20170110558

PATIENT
  Sex: Female

DRUGS (17)
  1. COD LIVER OIL [Concomitant]
     Active Substance: COD LIVER OIL
  2. GARLIC. [Concomitant]
     Active Substance: GARLIC
     Route: 048
  3. TURMERIC [Concomitant]
     Active Substance: TURMERIC
     Route: 048
  4. IMBRUVICA [Suspect]
     Active Substance: IBRUTINIB
     Indication: CHRONIC LYMPHOCYTIC LEUKAEMIA
     Route: 048
     Dates: start: 20170123
  5. BROMELAINS [Concomitant]
     Active Substance: BROMELAINS
     Route: 048
  6. MONTELUKAST SODIUM. [Concomitant]
     Active Substance: MONTELUKAST SODIUM
     Route: 048
  7. MYRBETRIQ [Concomitant]
     Active Substance: MIRABEGRON
     Dosage: EXTENDED RELEASE 24 HR TABLET 1, SUSTAIN RELEASE 24 HR DAILY
  8. ROYAL JELLY [Concomitant]
     Active Substance: ROYAL JELLY
     Dosage: 50-150-250, QD
     Route: 048
  9. CALCIUM CARBONATE W/COLECALCIFEROL [Concomitant]
     Active Substance: CALCIUM CARBONATE\CHOLECALCIFEROL
     Dosage: 600 MG - 800, QD
  10. COENZYME Q10 [Concomitant]
     Active Substance: UBIDECARENONE
  11. VITAMIN C [Concomitant]
     Active Substance: ASCORBIC ACID
  12. MAGNESIUM CITRATE. [Concomitant]
     Active Substance: MAGNESIUM CITRATE
     Route: 048
  13. PHOSPHORUS [Concomitant]
     Active Substance: PHOSPHORUS
     Route: 048
  14. VITAMIN B COMPLEX [Concomitant]
     Active Substance: CYANOCOBALAMIN\DEXPANTHENOL\NIACINAMIDE\PYRIDOXINE HYDROCHLORIDE\RIBOFLAVIN 5^-PHOSPHATE SODIUM\THIAMINE HYDROCHLORIDE\VITAMIN B COMPLEX
     Dosage: A COUPLE OF TIMES A WEEK
     Route: 048
  15. ZYRTEC [Concomitant]
     Active Substance: CETIRIZINE HYDROCHLORIDE
     Route: 048
  16. BIOTIN [Concomitant]
     Active Substance: BIOTIN
     Route: 048
  17. LACTOBACILLUS ACIDOPHILUS [Concomitant]
     Active Substance: LACTOBACILLUS ACIDOPHILUS
     Dosage: 1-2 TIMES DAILY
     Route: 048

REACTIONS (2)
  - Splenomegaly [Recovering/Resolving]
  - Fatigue [Unknown]
